FAERS Safety Report 4279550-7 (Version None)
Quarter: 2004Q1

REPORT INFORMATION
  Report Type: 
  Country: None (occurrence: None)
  Receive Date: 20040123
  Receipt Date: 20040113
  Transmission Date: 20041129
  Serious: Yes (Other)
  Sender: FDA-Public Use
  Company Number: 200410368GDDC

PATIENT
  Age: 55 Year
  Sex: Male

DRUGS (3)
  1. INSULIN GLARGINE SOLUTION NOS [Suspect]
     Indication: DIABETES MELLITUS
     Dosage: 30 U QD SC
     Route: 058
     Dates: start: 20030821
  2. METFORMIN HCL [Concomitant]
  3. GLICLAZIDE [Concomitant]

REACTIONS (1)
  - ARTHRALGIA [None]
